FAERS Safety Report 9628909 (Version 1)
Quarter: 2013Q4

REPORT INFORMATION
  Report Type: Spontaneous
  Country: US (occurrence: US)
  Receive Date: 20131017
  Receipt Date: 20131017
  Transmission Date: 20140711
  Serious: Yes (Hospitalization)
  Sender: FDA-Public Use
  Company Number: US-SA-2013SA101841

PATIENT
  Age: 79 Year
  Sex: Male
  Weight: 63.5 kg

DRUGS (9)
  1. LASIX [Suspect]
     Indication: FLUID RETENTION
     Route: 065
  2. XARELTO [Suspect]
     Indication: ATRIAL FIBRILLATION
     Route: 048
     Dates: start: 20130914, end: 20130921
  3. XARELTO [Suspect]
     Indication: CEREBROVASCULAR ACCIDENT PROPHYLAXIS
     Route: 048
     Dates: start: 20130914, end: 20130921
  4. XARELTO [Suspect]
     Indication: ATRIAL FIBRILLATION
     Route: 048
     Dates: start: 20130923
  5. XARELTO [Suspect]
     Indication: CEREBROVASCULAR ACCIDENT PROPHYLAXIS
     Route: 048
     Dates: start: 20130923
  6. DOXYCYCLINE [Suspect]
     Indication: PROPHYLAXIS AGAINST GASTROINTESTINAL ULCER
     Route: 065
  7. CARVEDILOL [Concomitant]
     Route: 065
  8. ENALAPRIL [Concomitant]
     Indication: BLOOD PRESSURE ABNORMAL
     Route: 048
  9. MULTIVITAMINS [Concomitant]

REACTIONS (6)
  - Haemoptysis [Recovered/Resolved]
  - Pneumonia [Unknown]
  - Faeces discoloured [Unknown]
  - Adverse event [Unknown]
  - Constipation [Recovered/Resolved]
  - Drug dose omission [Unknown]
